FAERS Safety Report 5910986-1 (Version None)
Quarter: 2008Q4

REPORT INFORMATION
  Report Type: 
  Country: None (occurrence: None)
  Receive Date: 20081007
  Receipt Date: 20080926
  Transmission Date: 20090506
  Serious: Yes (Other)
  Sender: FDA-Public Use
  Company Number: US-JNJFOC-20080906508

PATIENT
  Sex: Male

DRUGS (2)
  1. REMICADE [Suspect]
     Dosage: SECOND INJECTION AT 6 WEEK VISIT
     Route: 031
  2. REMICADE [Suspect]
     Indication: MACULAR DEGENERATION
     Dosage: FIRST INJECTION
     Route: 031

REACTIONS (6)
  - EYE INFLAMMATION [None]
  - EYE PAIN [None]
  - INTRAOCULAR PRESSURE INCREASED [None]
  - PAPILLOEDEMA [None]
  - RETINAL OEDEMA [None]
  - VISUAL ACUITY REDUCED [None]
